FAERS Safety Report 7351118-5 (Version None)
Quarter: 2011Q1

REPORT INFORMATION
  Report Type: 
  Country: None (occurrence: None)
  Receive Date: 20110314
  Receipt Date: 20110303
  Transmission Date: 20110831
  Serious: Yes (Other)
  Sender: FDA-Public Use
  Company Number: US-JNJFOC-20110304025

PATIENT
  Age: 75 Year
  Sex: Female
  Weight: 79.38 kg

DRUGS (6)
  1. VITAMIN B-12 [Concomitant]
     Indication: NUTRITIONAL SUPPORT
     Dosage: 6 MONTHS
     Route: 048
  2. VITAMIN D [Concomitant]
     Indication: NUTRITIONAL SUPPORT
     Dosage: 1 MONTH
     Route: 048
  3. METFORMIN [Concomitant]
     Indication: DIABETES MELLITUS
     Dosage: FOR 3 YEARS
     Route: 048
  4. BENICAR [Concomitant]
     Indication: PROPHYLAXIS
     Dosage: 3 YEARS
     Route: 048
  5. LISTERINE WHITENING PLUS RESTORING FLUORIDE RINSE CLEAN MINT [Suspect]
     Indication: DENTAL CARE
     Dosage: TWO TEASPOONSFUL
     Route: 048
  6. GLIPIZIDE [Concomitant]
     Indication: DIABETES MELLITUS
     Route: 048

REACTIONS (2)
  - LIP BLISTER [None]
  - ORAL DISCOMFORT [None]
